FAERS Safety Report 24329105 (Version 2)
Quarter: 2024Q3

REPORT INFORMATION
  Report Type: Spontaneous
  Country: US (occurrence: US)
  Receive Date: 20240917
  Receipt Date: 20240930
  Transmission Date: 20241017
  Serious: No
  Sender: TRAVERE THERAPEUTICS
  Company Number: US-TRAVERE-2024TVT00856

PATIENT
  Age: 39 Year
  Sex: Male

DRUGS (2)
  1. FILSPARI [Suspect]
     Active Substance: SPARSENTAN
     Indication: IgA nephropathy
     Route: 048
     Dates: start: 20240827
  2. TARPEYO [Concomitant]
     Active Substance: BUDESONIDE

REACTIONS (5)
  - Blood pressure decreased [Unknown]
  - Heart rate decreased [Recovered/Resolved]
  - Headache [Unknown]
  - Acne [Unknown]
  - Impaired quality of life [Unknown]

NARRATIVE: CASE EVENT DATE: 20240827
